FAERS Safety Report 8765248 (Version 3)
Quarter: 2012Q4

REPORT INFORMATION
  Report Type: 
  Country: US (occurrence: US)
  Receive Date: 20120903
  Receipt Date: 20121004
  Transmission Date: 20130627
  Serious: No
  Sender: FDA-Public Use
  Company Number: US-PFIZER INC-2012213772

PATIENT
  Age: 41 Year
  Sex: Male
  Weight: 96.6 kg

DRUGS (4)
  1. SUTENT [Suspect]
     Indication: RENAL CELL CARCINOMA
     Dosage: 50 mg, cyclic 28 days on therapy and for 14 days off therapy
     Dates: start: 20120817, end: 20120913
  2. AMLODIPINE [Concomitant]
     Indication: HYPERTENSION
     Dosage: 5 mg, 1x/day
     Dates: start: 201204
  3. LISINOPRIL [Concomitant]
     Dosage: UNK
  4. OXYCODONE [Concomitant]
     Indication: PAIN
     Dosage: 5 mg, as needed

REACTIONS (5)
  - Faeces discoloured [Unknown]
  - Flatulence [Unknown]
  - Dysgeusia [Recovering/Resolving]
  - Nausea [Unknown]
  - Gingival pain [Recovering/Resolving]
